FAERS Safety Report 5375693-5 (Version None)
Quarter: 2007Q2

REPORT INFORMATION
  Report Type: 
  Country: None (occurrence: None)
  Receive Date: 20070629
  Receipt Date: 20070624
  Transmission Date: 20071010
  Serious: Yes (Other)
  Sender: FDA-Public Use
  Company Number: US-PFIZER INC-2007052643

PATIENT
  Age: 44 Year
  Sex: Female
  Weight: 94.8 kg

DRUGS (6)
  1. GEODON [Suspect]
     Indication: BIPOLAR I DISORDER
  2. RELPAX [Suspect]
     Indication: MIGRAINE
  3. RELPAX [Suspect]
     Indication: CLUSTER HEADACHE
  4. TRAZODONE HCL [Suspect]
     Indication: BIPOLAR I DISORDER
  5. DEPAKOTE [Suspect]
     Indication: BIPOLAR I DISORDER
  6. ALL OTHER THERAPEUTIC PRODUCTS [Concomitant]

REACTIONS (6)
  - CHEST DISCOMFORT [None]
  - DIZZINESS [None]
  - DRY MOUTH [None]
  - FLUSHING [None]
  - MIGRAINE [None]
  - NAUSEA [None]
